FAERS Safety Report 16696580 (Version 1)
Quarter: 2019Q3

REPORT INFORMATION
  Report Type: Spontaneous
  Country: US (occurrence: US)
  Receive Date: 20190813
  Receipt Date: 20190813
  Transmission Date: 20191004
  Serious: No
  Sender: FDA-Public Use
  Company Number: US-ALLERGAN-1923998US

PATIENT
  Sex: Female

DRUGS (3)
  1. HYDROXYZINE [Suspect]
     Active Substance: HYDROXYZINE HYDROCHLORIDE
  2. MORPHINE SULFATE UNK [Suspect]
     Active Substance: MORPHINE SULFATE
     Indication: PRODUCT USED FOR UNKNOWN INDICATION
  3. BIAXIN [Suspect]
     Active Substance: CLARITHROMYCIN

REACTIONS (5)
  - Drug hypersensitivity [Unknown]
  - Rash [Unknown]
  - Erythema [Unknown]
  - Urticaria [Unknown]
  - Pruritus [Unknown]
